FAERS Safety Report 11371630 (Version 1)
Quarter: 2015Q3

REPORT INFORMATION
  Report Type: Spontaneous
  Country: US (occurrence: US)
  Receive Date: 20150812
  Receipt Date: 20150812
  Transmission Date: 20151125
  Serious: Yes (Other)
  Sender: FDA-Public Use
  Company Number: US-TEVA-584764USA

PATIENT
  Age: 39 Year
  Sex: Female

DRUGS (2)
  1. PIROXICAM. [Suspect]
     Active Substance: PIROXICAM
     Route: 065
     Dates: start: 20141210
  2. TOPIRAMATE (SPRINKLE) [Suspect]
     Active Substance: TOPIRAMATE
     Route: 065
     Dates: start: 20130406

REACTIONS (1)
  - Anaphylactic reaction [Unknown]
